FAERS Safety Report 11069689 (Version 7)
Quarter: 2015Q2

REPORT INFORMATION
  Report Type: Report from Study
  Country: GR (occurrence: GR)
  Receive Date: 20150427
  Receipt Date: 20150615
  Transmission Date: 20150821
  Serious: Yes (Life-Threatening, Hospitalization, Other)
  Sender: FDA-Public Use
  Company Number: GR-B.I. PHARMACEUTICALS,INC./RIDGEFIELD-2015-BI-21741II

PATIENT
  Age: 68 Year
  Sex: Female
  Weight: 95 kg

DRUGS (22)
  1. JANUVIA [Concomitant]
     Active Substance: SITAGLIPTIN PHOSPHATE
     Dosage: 1000 MG
     Route: 048
     Dates: end: 20150402
  2. INEGY [Concomitant]
     Active Substance: EZETIMIBE\SIMVASTATIN
     Indication: DYSLIPIDAEMIA
     Dosage: DOSE PER APPLICATION AND DAILY DOSE:10/40MG
     Route: 048
     Dates: end: 20150402
  3. LOSEC [Concomitant]
     Active Substance: OMEPRAZOLE
     Dosage: 40 MG
     Route: 042
     Dates: start: 20150424, end: 20150504
  4. OLARTAN PLUS [Concomitant]
     Indication: HYPERTENSION
     Dosage: DOSE PER APPLICATION AND DAILY DOSE: 20/25 MG
     Route: 048
     Dates: start: 20150407
  5. NEOCARDON [Concomitant]
     Active Substance: ATENOLOL
     Indication: HYPERTENSION
     Dosage: 50 MG
     Route: 048
  6. GLUCOPHAGE [Concomitant]
     Active Substance: METFORMIN HYDROCHLORIDE
     Dosage: 500 MG
     Route: 048
     Dates: end: 20150204
  7. BIBW 2992 [Suspect]
     Active Substance: AFATINIB
     Indication: METASTATIC GASTRIC CANCER
     Dosage: 40 MG
     Route: 048
     Dates: start: 20150402, end: 20150408
  8. OLARTAN PLUS [Concomitant]
     Dosage: DOSE PER APPLICATION AND DAILY DOSE: 20/25 MG
     Route: 048
     Dates: end: 20150402
  9. DIAMICRON [Concomitant]
     Active Substance: GLICLAZIDE
     Indication: DIABETES MELLITUS
     Dosage: 120 MG
     Route: 048
     Dates: start: 20150407
  10. ZOFRAN [Concomitant]
     Active Substance: ONDANSETRON HYDROCHLORIDE
     Indication: PREMEDICATION
     Dosage: 16 MG
     Route: 042
     Dates: start: 20150331, end: 20150403
  11. GLUCOPHAGE [Concomitant]
     Active Substance: METFORMIN HYDROCHLORIDE
     Indication: DIABETES MELLITUS
     Dosage: 500 MG
     Route: 048
     Dates: start: 20150407
  12. CISPLATIN. [Suspect]
     Active Substance: CISPLATIN
     Indication: METASTATIC GASTRIC CANCER
     Dosage: 150 MG
     Route: 042
     Dates: start: 20150331, end: 20150331
  13. CISPLATIN. [Suspect]
     Active Substance: CISPLATIN
     Route: 042
     Dates: start: 20150428
  14. LYRICA [Concomitant]
     Active Substance: PREGABALIN
     Indication: BACK PAIN
     Dosage: 75 MG
     Route: 048
  15. JANUVIA [Concomitant]
     Active Substance: SITAGLIPTIN PHOSPHATE
     Indication: DIABETES MELLITUS
     Dosage: 1000 MG
     Route: 048
     Dates: start: 20150407
  16. INNOHEP [Concomitant]
     Active Substance: TINZAPARIN SODIUM
     Indication: THROMBOSIS PROPHYLAXIS
     Dosage: 0.5 U
     Route: 058
     Dates: start: 20150331, end: 20150408
  17. INNOHEP [Concomitant]
     Active Substance: TINZAPARIN SODIUM
     Dosage: 0.35 U
     Route: 058
     Dates: start: 20150424
  18. 5 FU [Suspect]
     Active Substance: FLUOROURACIL
     Dosage: 1200 MG
     Route: 042
     Dates: start: 20150428
  19. LOSEC [Concomitant]
     Active Substance: OMEPRAZOLE
     Indication: PROPHYLAXIS
     Dosage: 20 MG
     Route: 042
     Dates: start: 20150409, end: 20150421
  20. BIBW 2992 [Suspect]
     Active Substance: AFATINIB
     Route: 048
     Dates: start: 20150428
  21. 5 FU [Suspect]
     Active Substance: FLUOROURACIL
     Indication: METASTATIC GASTRIC CANCER
     Dosage: 1200 MG
     Route: 042
     Dates: start: 20150331, end: 20150403
  22. DIAMICRON [Concomitant]
     Active Substance: GLICLAZIDE
     Dosage: 120 MG
     Route: 048
     Dates: end: 20150402

REACTIONS (11)
  - Renal disorder [Not Recovered/Not Resolved]
  - Diarrhoea [Recovered/Resolved]
  - Hypokalaemia [Recovered/Resolved]
  - Anaemia [Recovered/Resolved]
  - Tumour haemorrhage [Recovered/Resolved]
  - Thrombocytopenia [Recovered/Resolved]
  - Vomiting [Recovered/Resolved]
  - Hypomagnesaemia [Not Recovered/Not Resolved]
  - Neutropenia [Recovered/Resolved]
  - Fatigue [Not Recovered/Not Resolved]
  - Hyponatraemia [Recovered/Resolved]

NARRATIVE: CASE EVENT DATE: 20150402
